FAERS Safety Report 16809395 (Version 2)
Quarter: 2020Q1

REPORT INFORMATION
  Report Type: Other
  Country: US (occurrence: US)
  Receive Date: 20190916
  Receipt Date: 20200119
  Transmission Date: 20200409
  Serious: Yes (Hospitalization, Other)
  Sender: FDA-Public Use
  Company Number: US-AJANTA PHARMA USA INC.-2074476

PATIENT
  Age: 86 Year
  Sex: Female

DRUGS (2)
  1. BACLOFEN. [Suspect]
     Active Substance: BACLOFEN
  2. CLONIDINE (ANDA 209686) [Suspect]
     Active Substance: CLONIDINE
     Route: 048

REACTIONS (8)
  - Depressed level of consciousness [Recovered/Resolved]
  - Hypotension [Recovered/Resolved]
  - Bradycardia [Recovered/Resolved]
  - Asthenia [Recovering/Resolving]
  - Accidental exposure to product [Recovered/Resolved]
  - Respiratory failure [Recovered/Resolved]
  - Dizziness [Recovering/Resolving]
  - Mental status changes [Recovering/Resolving]
